FAERS Safety Report 5428819-9 (Version None)
Quarter: 2007Q3

REPORT INFORMATION
  Report Type: 
  Country: None (occurrence: None)
  Receive Date: 20070829
  Receipt Date: 20070220
  Transmission Date: 20080115
  Serious: No
  Sender: FDA-Public Use
  Company Number: A0638624A

PATIENT
  Age: 82 Year
  Sex: Female

DRUGS (8)
  1. ZOVIRAX [Suspect]
     Route: 061
     Dates: start: 20070105
  2. VICODIN [Concomitant]
     Indication: PAIN
     Route: 048
     Dates: start: 20070105
  3. COZAAR [Concomitant]
     Dosage: 50MG TWICE PER DAY
     Route: 048
  4. DIGOXIN [Concomitant]
     Dosage: .25MG PER DAY
     Route: 048
  5. HYDROCHLOROTHIAZIDE [Concomitant]
     Dosage: 12.5MG PER DAY
     Route: 048
  6. POTASSIUM CHLORIDE [Concomitant]
     Dosage: 81MG PER DAY
     Route: 048
  7. PRILOSEC [Concomitant]
     Dosage: 10MG PER DAY
     Route: 048
  8. WARFARIN [Concomitant]
     Dosage: 2MG PER DAY
     Route: 048

REACTIONS (1)
  - APPLICATION SITE PRURITUS [None]
